FAERS Safety Report 5744337-2 (Version None)
Quarter: 2008Q2

REPORT INFORMATION
  Report Type: 
  Country: None (occurrence: None)
  Receive Date: 20080516
  Receipt Date: 20080506
  Transmission Date: 20081010
  Serious: Yes (Death, Other)
  Sender: FDA-Public Use
  Company Number: OSCN-PR-0804L-0208

PATIENT
  Age: 68 Year
  Sex: Male

DRUGS (1)
  1. OMNISCAN [Suspect]
     Indication: DRUG USE FOR UNKNOWN INDICATION
     Dosage: 40 MG, SINGLE DOSE, I.V.
     Route: 042

REACTIONS (1)
  - UNEVALUABLE EVENT [None]
